FAERS Safety Report 24307491 (Version 1)
Quarter: 2024Q3

REPORT INFORMATION
  Report Type: Spontaneous
  Country: US (occurrence: US)
  Receive Date: 20240911
  Receipt Date: 20240911
  Transmission Date: 20241016
  Serious: Yes (Other)
  Sender: DR REDDYS
  Company Number: US-DRL-USA-SPO/USA/24/0013131

PATIENT
  Age: 81 Year
  Sex: Female

DRUGS (4)
  1. DECITABINE [Suspect]
     Active Substance: DECITABINE
     Indication: Myeloproliferative neoplasm
  2. VENETOCLAX [Concomitant]
     Active Substance: VENETOCLAX
     Indication: Myeloproliferative neoplasm
  3. ENASIDENIB [Concomitant]
     Active Substance: ENASIDENIB
     Indication: Myeloproliferative neoplasm
     Dosage: 100 MG DAILY
  4. IVOSIDENIB [Concomitant]
     Active Substance: IVOSIDENIB
     Indication: Myeloproliferative neoplasm
     Dosage: 500 MG DAILY 13 MONTHS

REACTIONS (1)
  - Drug ineffective for unapproved indication [Unknown]
